FAERS Safety Report 14642143 (Version 1)
Quarter: 2018Q1

REPORT INFORMATION
  Report Type: Spontaneous
  Country: US (occurrence: US)
  Receive Date: 20180315
  Receipt Date: 20180315
  Transmission Date: 20180509
  Serious: No
  Sender: FDA-Public Use
  Company Number: None

PATIENT
  Sex: Female
  Weight: 61.23 kg

DRUGS (3)
  1. TALTZ [Suspect]
     Active Substance: IXEKIZUMAB
     Indication: MELANOCYTIC HYPERPLASIA
     Route: 058
     Dates: start: 201711
  2. TALTZ [Suspect]
     Active Substance: IXEKIZUMAB
     Indication: PSORIASIS
     Route: 058
     Dates: start: 201711
  3. TALTZ [Suspect]
     Active Substance: IXEKIZUMAB
     Indication: SKIN HYPERTROPHY
     Route: 058
     Dates: start: 201711

REACTIONS (1)
  - Hypersensitivity [None]
